FAERS Safety Report 12633294 (Version 1)
Quarter: 2016Q3

REPORT INFORMATION
  Report Type: Spontaneous
  Country: CA (occurrence: None)
  Receive Date: 20160808
  Receipt Date: 20160808
  Transmission Date: 20161109
  Serious: Yes (Other)
  Sender: FDA-Public Use
  Company Number: None

PATIENT
  Age: 59 Year
  Sex: Male
  Weight: 83.46 kg

DRUGS (4)
  1. GABAPENTIN 100MG, 100 MG [Suspect]
     Active Substance: GABAPENTIN
     Indication: MEDICAL DEVICE PAIN
     Dosage: 5 CAPSULE(S) 2 TO 3 PER DAY TAKEN BY MOUTH
     Route: 048
     Dates: start: 20160805, end: 20160806
  2. NOVO-LEXIN CEPHALEXIN [Concomitant]
  3. CODEINE [Concomitant]
     Active Substance: CODEINE
  4. ASPRIN [Concomitant]
     Active Substance: ASPIRIN

REACTIONS (4)
  - Abnormal dreams [None]
  - Pulmonary pain [None]
  - Oropharyngeal pain [None]
  - Dyspnoea [None]

NARRATIVE: CASE EVENT DATE: 20160806
